FAERS Safety Report 22381873 (Version 1)
Quarter: 2023Q2

REPORT INFORMATION
  Report Type: Spontaneous
  Country: US (occurrence: US)
  Receive Date: 20230530
  Receipt Date: 20230530
  Transmission Date: 20230722
  Serious: Yes (Other)
  Sender: FDA-Public Use
  Company Number: US-SA-SAC20230529000708

PATIENT
  Age: 14 Year
  Sex: Male

DRUGS (4)
  1. ALPROLIX [Suspect]
     Active Substance: EFTRENONACOG ALFA
     Indication: Factor IX deficiency
     Dosage: DOSE - 2000 UNITS, FREQUENCY: EVERY WEEK AND EVERY OTHER DAY AS NEEDED FOR SUSPECTED BLEEDING
     Route: 042
     Dates: start: 201207
  2. ALPROLIX [Suspect]
     Active Substance: EFTRENONACOG ALFA
     Indication: Factor IX deficiency
     Dosage: DOSE - 2000 UNITS, FREQUENCY: EVERY WEEK AND EVERY OTHER DAY AS NEEDED FOR SUSPECTED BLEEDING
     Route: 042
     Dates: start: 201207
  3. ALPROLIX [Suspect]
     Active Substance: EFTRENONACOG ALFA
     Dosage: DOSE - 500 UNITS, FREQUENCY: EVERY WEEK AND EVERY OTHER DAY AS NEEDED FOR SUSPECTED BLEEDING
     Route: 042
     Dates: start: 201207
  4. ALPROLIX [Suspect]
     Active Substance: EFTRENONACOG ALFA
     Dosage: DOSE - 500 UNITS, FREQUENCY: EVERY WEEK AND EVERY OTHER DAY AS NEEDED FOR SUSPECTED BLEEDING
     Route: 042
     Dates: start: 201207

REACTIONS (2)
  - Haemorrhage [Unknown]
  - Peripheral swelling [Unknown]

NARRATIVE: CASE EVENT DATE: 20230501
